FAERS Safety Report 6015976-9 (Version None)
Quarter: 2008Q4

REPORT INFORMATION
  Report Type: 
  Country: None (occurrence: None)
  Receive Date: 20081219
  Receipt Date: 20081219
  Transmission Date: 20090506
  Serious: Yes (Hospitalization, Other)
  Sender: FDA-Public Use
  Company Number: None

PATIENT
  Age: 43 Year
  Sex: Male
  Weight: 77 kg

DRUGS (10)
  1. WARFARIN [Suspect]
     Indication: PULMONARY EMBOLISM
     Dosage: 3 MG OF 1/WEEK SC SSR126517 + PLACEBO WARFARIN VERSUS PLACEBO SSR126517 + ORAL INR-ADJUSTED WARFARIN
     Route: 058
     Dates: start: 20080605
  2. ENOXAPARIN SODIUM [Suspect]
     Indication: PULMONARY EMBOLISM
     Dosage: 1 MG/KG BID - SUBCUTANEOUS
     Route: 058
     Dates: start: 20080604, end: 20080612
  3. OMALIZUMAB [Concomitant]
  4. HYDROCORTISONE [Concomitant]
  5. VALSARTAN/ HYDROCHLOROTHIAZIDE [Concomitant]
  6. TERBUTALINE SULFATE [Concomitant]
  7. IPRATROPIUM BROMIDE [Concomitant]
  8. FORMOTEROL FUMARATE [Concomitant]
  9. ESOMEPRAZOLE MAGNESIUM [Concomitant]
  10. BROMAZEPAM [Concomitant]

REACTIONS (3)
  - GINGIVAL BLEEDING [None]
  - INTERNATIONAL NORMALISED RATIO INCREASED [None]
  - INTRA-ABDOMINAL HAEMATOMA [None]
